FAERS Safety Report 11648605 (Version 2)
Quarter: 2015Q4

REPORT INFORMATION
  Report Type: Spontaneous
  Country: US (occurrence: US)
  Receive Date: 20151021
  Receipt Date: 20151021
  Transmission Date: 20160304
  Serious: Yes (Hospitalization)
  Sender: FDA-Public Use
  Company Number: US-MUNDIPHARMA DS AND PHARMACOVIGILANCE-USA-2014-0118470

PATIENT
  Age: 51 Year
  Sex: Female
  Weight: 63.95 kg

DRUGS (9)
  1. OXYCONTIN [Suspect]
     Active Substance: OXYCODONE HYDROCHLORIDE
     Indication: NEURALGIA
     Dosage: 20 MG, BID
     Route: 048
     Dates: start: 20100507, end: 20100720
  2. OXYCODONE HYDROCHLORIDE (SIMILAR TO NDA 22-272) [Suspect]
     Active Substance: OXYCODONE HYDROCHLORIDE
     Indication: NEURALGIA
     Dosage: 15 MG, Q6H PRN
     Route: 048
     Dates: start: 20091211, end: 20100720
  3. OXYCODONE HYDROCHLORIDE (SIMILAR TO NDA 22-272) [Suspect]
     Active Substance: OXYCODONE HYDROCHLORIDE
     Dosage: 30 MG, Q6H
     Route: 048
     Dates: start: 20091211, end: 20100720
  4. CRIZOTINIB [Concomitant]
     Active Substance: CRIZOTINIB
     Indication: NON-SMALL CELL LUNG CANCER
     Dosage: 250 MG, BID
     Route: 048
     Dates: start: 20090325
  5. TYLENOL [Concomitant]
     Active Substance: ACETAMINOPHEN
     Indication: PAIN
     Dosage: 650 MG, Q6H PRN
     Route: 048
     Dates: start: 20071029, end: 20110628
  6. EFFEXOR [Concomitant]
     Active Substance: VENLAFAXINE HYDROCHLORIDE
     Indication: DEPRESSION
     Dosage: 150 MG, DAILY
     Route: 048
     Dates: start: 20100415
  7. ATIVAN [Concomitant]
     Active Substance: LORAZEPAM
     Indication: ANXIETY
     Dosage: 0.5 MG, Q4H PRN
     Route: 048
     Dates: start: 20071029, end: 20100720
  8. PERCOCET                           /00446701/ [Concomitant]
     Active Substance: ACETAMINOPHEN\OXYCODONE HYDROCHLORIDE\OXYCODONE TEREPHTHALATE
     Indication: PAIN
     Dosage: UNK
     Route: 048
     Dates: start: 20090401, end: 20100507
  9. TRAZODONE [Concomitant]
     Active Substance: TRAZODONE HYDROCHLORIDE
     Indication: INSOMNIA
     Dosage: 25 MG, HS
     Route: 048
     Dates: start: 20071029, end: 20110628

REACTIONS (2)
  - Drug withdrawal syndrome [Unknown]
  - Drug abuse [Recovered/Resolved]

NARRATIVE: CASE EVENT DATE: 20100608
